FAERS Safety Report 4972496-8 (Version None)
Quarter: 2006Q2

REPORT INFORMATION
  Report Type: 
  Country: None (occurrence: None)
  Receive Date: 20060413
  Receipt Date: 20060323
  Transmission Date: 20061013
  Serious: Yes (Other)
  Sender: FDA-Public Use
  Company Number: US-MERCK-0603USA03890

PATIENT
  Age: 62 Year
  Sex: Female

DRUGS (16)
  1. INVANZ [Suspect]
     Route: 042
     Dates: start: 20060318, end: 20060322
  2. AMLODIPINE BESYLATE [Concomitant]
     Route: 065
  3. ASCORBIC ACID [Concomitant]
     Route: 065
  4. PLETAL [Concomitant]
     Route: 065
  5. FERROUS SULFATE [Concomitant]
     Route: 065
  6. FOLIC ACID [Concomitant]
     Route: 065
  7. FUROSEMIDE [Concomitant]
     Route: 065
  8. HEPARIN [Concomitant]
     Route: 042
  9. NOVOLOG [Concomitant]
     Route: 065
  10. INSULIN HUMAN [Concomitant]
     Route: 065
  11. LANSOPRAZOLE [Concomitant]
     Route: 065
  12. LEVOFLOXACIN [Concomitant]
     Route: 065
  13. METOPROLOL [Concomitant]
     Route: 065
  14. POTASSIUM CHLORIDE [Concomitant]
     Route: 065
  15. RAMIPRIL [Concomitant]
     Route: 065
  16. SPIRIVA [Concomitant]
     Route: 065

REACTIONS (2)
  - ABNORMAL BEHAVIOUR [None]
  - HALLUCINATION [None]
